FAERS Safety Report 6232175-6 (Version None)
Quarter: 2009Q2

REPORT INFORMATION
  Report Type: 
  Country: None (occurrence: None)
  Receive Date: 20090615
  Receipt Date: 20090615
  Transmission Date: 20091009
  Serious: Yes (Hospitalization)
  Sender: FDA-Public Use
  Company Number: None

PATIENT
  Sex: Male
  Weight: 64.4108 kg

DRUGS (3)
  1. OXALIPLATIN [Suspect]
     Indication: PANCREATIC CARCINOMA
     Dosage: 76MG IV Q 14 DAYS
     Route: 042
     Dates: start: 20090522
  2. SORAFENIB [Suspect]
     Dosage: 200 MG QOD
     Dates: start: 20090522
  3. CAPECITABINE 2025MG Q 8 HR X 6 DOSES [Suspect]
     Dosage: 2025MG Q 8 HR X 6 DOSES

REACTIONS (5)
  - FEBRILE NEUTROPENIA [None]
  - HYPOTENSION [None]
  - INFECTION [None]
  - LUNG INFILTRATION [None]
  - WHITE BLOOD CELL COUNT DECREASED [None]
